FAERS Safety Report 9795258 (Version 2)
Quarter: 2014Q1

REPORT INFORMATION
  Report Type: Spontaneous
  Country: FR (occurrence: FR)
  Receive Date: 20140103
  Receipt Date: 20140224
  Transmission Date: 20141002
  Serious: Yes (Other)
  Sender: FDA-Public Use
  Company Number: FR-ROCHE-1328866

PATIENT
  Age: 33 Year
  Sex: Female
  Weight: 60 kg

DRUGS (4)
  1. XOLAIR [Suspect]
     Indication: URTICARIA CHRONIC
     Route: 058
     Dates: start: 20131016
  2. XOLAIR [Suspect]
     Route: 058
     Dates: start: 20131111, end: 20131111
  3. SINGULAIR [Concomitant]
     Route: 065
     Dates: start: 1998
  4. INORIAL [Concomitant]
     Route: 065
     Dates: start: 1998

REACTIONS (4)
  - Urticaria [Recovered/Resolved]
  - Pyrexia [Recovered/Resolved]
  - Arthralgia [Recovered/Resolved]
  - Off label use [Unknown]
